FAERS Safety Report 4835462-9 (Version None)
Quarter: 2005Q4

REPORT INFORMATION
  Report Type: 
  Country: None (occurrence: None)
  Receive Date: 20051122
  Receipt Date: 20051122
  Transmission Date: 20060501
  Serious: Yes (Hospitalization)
  Sender: FDA-Public Use
  Company Number: None

PATIENT
  Age: 86 Year
  Sex: Male
  Weight: 71 kg

DRUGS (9)
  1. LEXAPRO [Suspect]
     Indication: DEPRESSION
     Dosage: 10 MG DAILY PO
     Route: 048
     Dates: start: 20051019, end: 20051101
  2. COUMADIN [Concomitant]
  3. SPIRONOLACTONE [Concomitant]
  4. ALTACE [Concomitant]
  5. DIGOXIN [Concomitant]
  6. COREG [Concomitant]
  7. FUROSEMIDE [Concomitant]
  8. LUPRON [Concomitant]
  9. TEMAZEPAM [Concomitant]

REACTIONS (4)
  - ASTHENIA [None]
  - HYPONATRAEMIA [None]
  - INAPPROPRIATE ANTIDIURETIC HORMONE SECRETION [None]
  - MALNUTRITION [None]
